FAERS Safety Report 4439470-1 (Version None)
Quarter: 2004Q3

REPORT INFORMATION
  Report Type: 
  Country: None (occurrence: None)
  Receive Date: 20040728
  Receipt Date: 20040310
  Transmission Date: 20050211
  Serious: No
  Sender: FDA-Public Use
  Company Number: USA040361665

PATIENT
  Age: 9 Year
  Sex: Male
  Weight: 33 kg

DRUGS (1)
  1. STRATTERA [Suspect]
     Dosage: 40 MG/1 DAY
     Dates: start: 20030801, end: 20030901

REACTIONS (2)
  - AGGRESSION [None]
  - PSYCHOMOTOR HYPERACTIVITY [None]
